FAERS Safety Report 6343790-3 (Version None)
Quarter: 2009Q3

REPORT INFORMATION
  Report Type: 
  Country: None (occurrence: None)
  Receive Date: 20090908
  Receipt Date: 20090826
  Transmission Date: 20100115
  Serious: Yes (Hospitalization)
  Sender: FDA-Public Use
  Company Number: B0591272A

PATIENT
  Age: 13 Year
  Sex: Male

DRUGS (4)
  1. PARACETAMOL [Suspect]
     Indication: RESPIRATORY TRACT INFECTION
     Dosage: 500MG PER DAY
  2. PSEUDOEPHEDRINE HCL [Suspect]
     Indication: UPPER RESPIRATORY TRACT INFECTION
     Dosage: 30MG PER DAY
  3. DEXTROMETHORPHAN HYDROBROMIDE [Suspect]
     Indication: UPPER RESPIRATORY TRACT INFECTION
     Dosage: 20MG PER DAY
  4. CEFUROXIME AXETIL [Suspect]
     Indication: UPPER RESPIRATORY TRACT INFECTION
     Dosage: 1TAB TWICE PER DAY

REACTIONS (13)
  - ABDOMINAL PAIN [None]
  - ACCIDENTAL EXPOSURE [None]
  - ARRHYTHMIA [None]
  - CARDIOVASCULAR DISORDER [None]
  - COLD SWEAT [None]
  - CONDUCTION DISORDER [None]
  - CYANOSIS [None]
  - HEART RATE IRREGULAR [None]
  - HYPOTHERMIA [None]
  - MALAISE [None]
  - PALLOR [None]
  - RESPIRATORY DISORDER [None]
  - SHOCK [None]
